FAERS Safety Report 13451926 (Version 1)
Quarter: 2017Q2

REPORT INFORMATION
  Report Type: Report from Study
  Country: BR (occurrence: BR)
  Receive Date: 20170418
  Receipt Date: 20170418
  Transmission Date: 20170830
  Serious: Yes (Hospitalization)
  Sender: FDA-Public Use
  Company Number: PHHY2017BR057536

PATIENT
  Sex: Female
  Weight: 10.27 kg

DRUGS (1)
  1. TRILEPTAL [Suspect]
     Active Substance: OXCARBAZEPINE
     Indication: NERVOUS SYSTEM DISORDER
     Dosage: 1.74 ML, Q12H
     Route: 065

REACTIONS (4)
  - CSF volume increased [Unknown]
  - Product use in unapproved indication [Unknown]
  - Structural valve deterioration [Unknown]
  - Eating disorder [Unknown]
